FAERS Safety Report 19757109 (Version 1)
Quarter: 2021Q3

REPORT INFORMATION
  Report Type: Report from Study
  Country: CA (occurrence: CA)
  Receive Date: 20210828
  Receipt Date: 20210828
  Transmission Date: 20211014
  Serious: Yes (Other)
  Sender: FDA-Public Use
  Company Number: NVSC2019CA014621

PATIENT
  Age: 68 Year
  Sex: Male

DRUGS (5)
  1. COSENTYX [Suspect]
     Active Substance: SECUKINUMAB
     Dosage: 300 MG, QMO (PATIENT CONTINUES TO INJECT AS PRESCRIBED)
     Route: 058
  2. HUMIRA [Concomitant]
     Active Substance: ADALIMUMAB
     Indication: PSORIASIS
     Route: 058
  3. COSENTYX [Suspect]
     Active Substance: SECUKINUMAB
     Indication: PSORIASIS
     Dosage: 300 MG, QMO(SENSOREADY PEN) BATCH NUMBER WAS NOT AVAILABLE
     Route: 058
     Dates: start: 20180115
  4. ACITRETIN. [Concomitant]
     Active Substance: ACITRETIN
     Indication: PSORIASIS
     Route: 065
  5. CYCLOSPORINE. [Concomitant]
     Active Substance: CYCLOSPORINE
     Indication: PSORIASIS
     Route: 065

REACTIONS (7)
  - Pruritus [Unknown]
  - Amnesia [Unknown]
  - Skin lesion [Unknown]
  - Sexual dysfunction [Unknown]
  - Dementia [Unknown]
  - Pain [Unknown]
  - Skin disorder [Unknown]

NARRATIVE: CASE EVENT DATE: 20191007
